FAERS Safety Report 5313303-3 (Version None)
Quarter: 2007Q2

REPORT INFORMATION
  Report Type: 
  Country: None (occurrence: None)
  Receive Date: 20070501
  Receipt Date: 20070424
  Transmission Date: 20071010
  Serious: Yes (Other)
  Sender: FDA-Public Use
  Company Number: PHEH2007US06277

PATIENT
  Sex: Male

DRUGS (1)
  1. ZOMETA [Suspect]
     Indication: MULTIPLE MYELOMA
     Dosage: 4 MG Q4W
     Route: 042

REACTIONS (3)
  - ENDODONTIC PROCEDURE [None]
  - OSTEONECROSIS [None]
  - TOOTH EXTRACTION [None]
